FAERS Safety Report 23219178 (Version 1)
Quarter: 2023Q4

REPORT INFORMATION
  Report Type: Spontaneous
  Country: PT (occurrence: PT)
  Receive Date: 20231122
  Receipt Date: 20231122
  Transmission Date: 20240110
  Serious: Yes (Other)
  Sender: FDA-Public Use
  Company Number: None

PATIENT
  Age: 64 Year
  Sex: Female

DRUGS (1)
  1. PACLITAXEL [Suspect]
     Active Substance: PACLITAXEL
     Indication: Endometrial cancer
     Dosage: CONCENTRATE FOR SOLUTION FOR INFUSION?INTRAVENOUS
     Dates: start: 20230927, end: 20230927

REACTIONS (4)
  - Erythema [Recovered/Resolved]
  - Chest discomfort [Recovered/Resolved]
  - Feeling hot [Recovered/Resolved]
  - Infusion related reaction [Recovered/Resolved]

NARRATIVE: CASE EVENT DATE: 20230927
